FAERS Safety Report 9409923 (Version 1)
Quarter: 2013Q3

REPORT INFORMATION
  Report Type: Spontaneous
  Country: US (occurrence: US)
  Receive Date: 20130719
  Receipt Date: 20130719
  Transmission Date: 20140515
  Serious: Yes (Other)
  Sender: FDA-Public Use
  Company Number: US-JNJFOC-20130708419

PATIENT
  Age: 74 Year
  Sex: Female
  Weight: 51.71 kg

DRUGS (12)
  1. REMICADE [Suspect]
     Indication: COLITIS
     Route: 042
     Dates: start: 20130311
  2. REMICADE [Suspect]
     Indication: COLITIS
     Dosage: ONE TIME INFUSION GIVEN 4 WEEKS EARLY
     Route: 042
     Dates: start: 20130603
  3. REMICADE [Suspect]
     Indication: COLITIS
     Dosage: 3RD INFUSION
     Route: 042
     Dates: start: 201304
  4. REMICADE [Suspect]
     Indication: CROHN^S DISEASE
     Route: 042
     Dates: start: 20130311
  5. REMICADE [Suspect]
     Indication: CROHN^S DISEASE
     Dosage: ONE TIME INFUSION GIVEN 4 WEEKS EARLY
     Route: 042
     Dates: start: 20130603
  6. REMICADE [Suspect]
     Indication: CROHN^S DISEASE
     Dosage: 3RD INFUSION
     Route: 042
     Dates: start: 201304
  7. HYDROCORTISONE [Concomitant]
     Indication: CROHN^S DISEASE
     Route: 054
     Dates: start: 2013
  8. FLAGYL (METRONIDAZOLE) [Concomitant]
     Indication: CROHN^S DISEASE
     Route: 048
     Dates: start: 201301, end: 20130706
  9. CIPROFLOXACIN [Concomitant]
     Indication: URINARY TRACT INFECTION
     Route: 048
     Dates: start: 20130125, end: 20130706
  10. DICYCLOMINE [Concomitant]
     Indication: GASTROINTESTINAL DISORDER
     Dosage: AS NECESSARY
     Route: 048
     Dates: start: 20130516, end: 20130706
  11. PROBIOTIC [Concomitant]
     Indication: CROHN^S DISEASE
     Route: 048
  12. VITAMIN [Concomitant]
     Indication: CROHN^S DISEASE
     Route: 048

REACTIONS (5)
  - Abnormal loss of weight [Not Recovered/Not Resolved]
  - Diarrhoea [Not Recovered/Not Resolved]
  - Gastrointestinal haemorrhage [Not Recovered/Not Resolved]
  - Nausea [Not Recovered/Not Resolved]
  - Inappropriate schedule of drug administration [Not Recovered/Not Resolved]
